FAERS Safety Report 13847417 (Version 4)
Quarter: 2017Q3

REPORT INFORMATION
  Report Type: Spontaneous
  Country: CN (occurrence: CN)
  Receive Date: 20170808
  Receipt Date: 20170906
  Transmission Date: 20171127
  Serious: Yes (Hospitalization, Other)
  Sender: FDA-Public Use
  Company Number: CN-ASTRAZENECA-2017SE80134

PATIENT
  Age: 97 Year
  Sex: Male

DRUGS (3)
  1. CASODEX [Suspect]
     Active Substance: BICALUTAMIDE
     Indication: PROSTATE CANCER
     Route: 048
     Dates: end: 20170820
  2. ZOLADEX [Suspect]
     Active Substance: GOSERELIN ACETATE
     Indication: PROSTATE CANCER
     Route: 058
     Dates: start: 2016
  3. CASODEX [Suspect]
     Active Substance: BICALUTAMIDE
     Indication: PROSTATE CANCER
     Route: 048
     Dates: start: 2016

REACTIONS (11)
  - Decreased appetite [Recovering/Resolving]
  - Iodine deficiency [Unknown]
  - Hypokalaemia [Unknown]
  - Vomiting [Recovered/Resolved]
  - Calcium deficiency [Unknown]
  - Pyrexia [Recovered/Resolved]
  - Malignant neoplasm progression [Unknown]
  - General physical health deterioration [Unknown]
  - Blood sodium decreased [Unknown]
  - Anaemia [Not Recovered/Not Resolved]
  - Drug ineffective [Unknown]

NARRATIVE: CASE EVENT DATE: 2016
